FAERS Safety Report 12629550 (Version 1)
Quarter: 2016Q3

REPORT INFORMATION
  Report Type: Spontaneous
  Country: KR (occurrence: KR)
  Receive Date: 20160808
  Receipt Date: 20160808
  Transmission Date: 20161109
  Serious: Yes (Congenital Anomaly)
  Sender: FDA-Public Use
  Company Number: KR-ABBVIE-16K-090-1694920-00

PATIENT

DRUGS (1)
  1. HUMIRA [Suspect]
     Active Substance: ADALIMUMAB
     Indication: EXPOSURE VIA BODY FLUID
     Route: 050

REACTIONS (2)
  - Periventricular leukomalacia [Not Recovered/Not Resolved]
  - Foetal exposure during pregnancy [Unknown]
